FAERS Safety Report 23851368 (Version 1)
Quarter: 2024Q2

REPORT INFORMATION
  Report Type: Spontaneous
  Country: CA (occurrence: CA)
  Receive Date: 20240514
  Receipt Date: 20240514
  Transmission Date: 20240716
  Serious: Yes (Disabling)
  Sender: FDA-Public Use
  Company Number: CA-THEA-2024000970

PATIENT
  Sex: Male

DRUGS (1)
  1. LATANOPROST [Suspect]
     Active Substance: LATANOPROST
     Indication: Glaucoma
     Dosage: 1 EVERY 1 DAYS

REACTIONS (1)
  - Tinnitus [Not Recovered/Not Resolved]
